FAERS Safety Report 5835057-4 (Version None)
Quarter: 2008Q3

REPORT INFORMATION
  Report Type: 
  Country: None (occurrence: None)
  Receive Date: 20080804
  Receipt Date: 20080724
  Transmission Date: 20090109
  Serious: Yes (Life-Threatening)
  Sender: FDA-Public Use
  Company Number: OSCN-PR-0807S-0468

PATIENT
  Age: 74 Year
  Sex: Female
  Weight: 61.2356 kg

DRUGS (1)
  1. OMNISCAN [Suspect]
     Indication: DEAFNESS NEUROSENSORY
     Dosage: 12.7 ML, SINGLE DOSE, I.V.
     Route: 042
     Dates: start: 20080724, end: 20080724

REACTIONS (3)
  - MALAISE [None]
  - NAUSEA [None]
  - PALPITATIONS [None]
